FAERS Safety Report 6848693-3 (Version None)
Quarter: 2010Q3

REPORT INFORMATION
  Report Type: 
  Country: None (occurrence: None)
  Receive Date: 20100716
  Receipt Date: 20070904
  Transmission Date: 20110219
  Serious: No
  Sender: FDA-Public Use
  Company Number: US-PFIZER INC-2007074750

PATIENT
  Sex: Female
  Weight: 81.8 kg

DRUGS (3)
  1. CHANTIX [Suspect]
     Indication: SMOKING CESSATION THERAPY
     Dates: start: 20070901
  2. VITAMINS [Concomitant]
  3. ADVIL LIQUI-GELS [Concomitant]

REACTIONS (3)
  - FATIGUE [None]
  - FEELING JITTERY [None]
  - INCORRECT DOSE ADMINISTERED [None]
